FAERS Safety Report 9783681 (Version 1)
Quarter: 2013Q4

REPORT INFORMATION
  Report Type: Spontaneous
  Country: US (occurrence: None)
  Receive Date: 20131223
  Receipt Date: 20131223
  Transmission Date: 20140711
  Serious: No
  Sender: FDA-Public Use
  Company Number: EUS-2012-00488

PATIENT
  Age: 5 Year
  Sex: Female

DRUGS (1)
  1. ASPARAGINASE [Suspect]
     Indication: ACUTE LYMPHOCYTIC LEUKAEMIA

REACTIONS (3)
  - Pancreatitis necrotising [None]
  - Pancreatitis haemorrhagic [None]
  - Pancreatic pseudocyst [None]
